FAERS Safety Report 20198991 (Version 2)
Quarter: 2021Q4

REPORT INFORMATION
  Report Type: Spontaneous
  Country: US (occurrence: US)
  Receive Date: 20211217
  Receipt Date: 20211223
  Transmission Date: 20220304
  Serious: Yes (Death)
  Sender: FDA-Public Use
  Company Number: US-CELLTRION INC.-2021US016962

PATIENT

DRUGS (7)
  1. TRUXIMA [Suspect]
     Active Substance: RITUXIMAB-ABBS
     Indication: Non-Hodgkin^s lymphoma
     Dosage: EVERY 56 DAYS
     Route: 042
     Dates: start: 20200825
  2. TRUXIMA [Suspect]
     Active Substance: RITUXIMAB-ABBS
     Dosage: EVERY 56 DAYS
     Route: 042
     Dates: start: 20201021
  3. TRUXIMA [Suspect]
     Active Substance: RITUXIMAB-ABBS
     Dosage: EVERY 56 DAYS
     Route: 042
     Dates: start: 20201216
  4. TRUXIMA [Suspect]
     Active Substance: RITUXIMAB-ABBS
     Dosage: EVERY 56 DAYS
     Route: 042
     Dates: start: 20210210
  5. TRUXIMA [Suspect]
     Active Substance: RITUXIMAB-ABBS
     Dosage: EVERY 56 DAYS
     Route: 042
     Dates: start: 20210404
  6. TRUXIMA [Suspect]
     Active Substance: RITUXIMAB-ABBS
     Dosage: EVERY 56 DAYS
     Route: 042
     Dates: start: 20210607
  7. TRUXIMA [Suspect]
     Active Substance: RITUXIMAB-ABBS
     Dosage: EVERY 56 DAYS (LAST TRUXIMA INFUSION)
     Route: 042
     Dates: start: 20210802

REACTIONS (2)
  - Death [Fatal]
  - COVID-19 pneumonia [Fatal]

NARRATIVE: CASE EVENT DATE: 20211022
